FAERS Safety Report 7664524 (Version 2)
Quarter: 2013Q2

REPORT INFORMATION
  Report Type: Spontaneous
  Country: US (occurrence: US)
  Receive Date: 20101111
  Receipt Date: 20130621
  Transmission Date: 20140414
  Serious: Yes (Other)
  Sender: FDA-Public Use
  Company Number: US-ROCHE-718672

PATIENT
  Age: 27 Year
  Sex: Female
  Weight: 56.7 kg

DRUGS (5)
  1. ACCUTANE [Suspect]
     Indication: ACNE CYSTIC
     Route: 048
  2. ACCUTANE [Suspect]
     Route: 048
     Dates: start: 19970403, end: 19970728
  3. ACCUTANE [Suspect]
     Route: 048
     Dates: start: 1999, end: 1999
  4. TRINESSA [Concomitant]
     Indication: CONTRACEPTION
  5. ORTHO TRI-CYCLEN [Concomitant]
     Indication: CONTRACEPTION

REACTIONS (10)
  - Colitis ulcerative [Unknown]
  - Gastrointestinal injury [Unknown]
  - Inflammatory bowel disease [Unknown]
  - Genital herpes [Unknown]
  - Nasal dryness [Unknown]
  - Headache [Unknown]
  - Back pain [Unknown]
  - Postoperative wound infection [Unknown]
  - Neck pain [Unknown]
  - Nephrolithiasis [Unknown]
